FAERS Safety Report 8369094-5 (Version None)
Quarter: 2012Q2

REPORT INFORMATION
  Report Type: 
  Country: None (occurrence: None)
  Receive Date: 20120518
  Receipt Date: 20120516
  Transmission Date: 20120825
  Serious: No
  Sender: FDA-Public Use
  Company Number: US-PFIZER INC-2012119523

PATIENT
  Sex: Male
  Weight: 68.027 kg

DRUGS (5)
  1. MYFORTIC [Concomitant]
     Dosage: 720 MG (TWO 360MG AT A TIME TO TAKE 720MG), 2X/DAY
  2. RAMIPRIL [Concomitant]
     Dosage: 2.5 MG, 1X/DAY
  3. RAPAMUNE [Concomitant]
     Dosage: 3 MG, 1X/DAY
  4. LYRICA [Suspect]
     Indication: NEURALGIA
     Dosage: 50 MG, 2X/DAY
     Route: 048
     Dates: start: 20111101
  5. ZEMPLAR [Concomitant]
     Dosage: 1 UG, 1X/DAY

REACTIONS (1)
  - ABDOMINAL DISTENSION [None]
